FAERS Safety Report 6022743-9 (Version None)
Quarter: 2008Q4

REPORT INFORMATION
  Report Type: 
  Country: None (occurrence: None)
  Receive Date: 20081230
  Receipt Date: 20081216
  Transmission Date: 20090506
  Serious: Yes (Hospitalization)
  Sender: FDA-Public Use
  Company Number: IE-PFIZER INC-2008155895

PATIENT

DRUGS (3)
  1. METHYLPREDNISOLONE AND METHYLPREDNISOLONE ACETATE AND METHYLPREDNISOLO [Suspect]
     Indication: SCLERODERMA
  2. METHOTREXATE SODIUM [Suspect]
  3. D-PENICILLAMINE [Suspect]

REACTIONS (1)
  - DYSMORPHISM [None]
